FAERS Safety Report 6353997-7 (Version None)
Quarter: 2009Q3

REPORT INFORMATION
  Report Type: 
  Country: None (occurrence: None)
  Receive Date: 20090914
  Receipt Date: 20090901
  Transmission Date: 20100115
  Serious: Yes (Other)
  Sender: FDA-Public Use
  Company Number: US-ELI_LILLY_AND_COMPANY-US200909000419

PATIENT
  Sex: Female

DRUGS (1)
  1. CYMBALTA [Suspect]
     Indication: PAIN
     Dosage: 60 MG, DAILY (1/D)
     Dates: start: 20080101, end: 20090828

REACTIONS (6)
  - COORDINATION ABNORMAL [None]
  - DRUG WITHDRAWAL SYNDROME [None]
  - MALAISE [None]
  - OFF LABEL USE [None]
  - SURGERY [None]
  - WEIGHT INCREASED [None]
